FAERS Safety Report 10452317 (Version 1)
Quarter: 2014Q3

REPORT INFORMATION
  Report Type: Spontaneous
  Country: JP (occurrence: JP)
  Receive Date: 20140915
  Receipt Date: 20140915
  Transmission Date: 20150326
  Serious: Yes (Other)
  Sender: FDA-Public Use
  Company Number: PHHY2013JP162763

PATIENT

DRUGS (1)
  1. TASIGNA [Suspect]
     Active Substance: NILOTINIB
     Dosage: UNK UKN, UNK

REACTIONS (3)
  - Pancreatitis acute [Unknown]
  - Gastrointestinal disorder [Unknown]
  - Cerebral infarction [Unknown]
